FAERS Safety Report 8247591-0 (Version None)
Quarter: 2012Q1

REPORT INFORMATION
  Report Type: 
  Country: None (occurrence: None)
  Receive Date: 20120330
  Receipt Date: 20120323
  Transmission Date: 20120608
  Serious: Yes (Hospitalization)
  Sender: FDA-Public Use
  Company Number: PHHO2012US004870

PATIENT
  Sex: Male

DRUGS (3)
  1. MYCOPHENOLATE MOFETIL [Suspect]
     Indication: RENAL TRANSPLANT
     Dosage: 1000 MG, BID
     Dates: start: 20111122, end: 20120323
  2. PREDNISONE TAB [Suspect]
     Indication: RENAL TRANSPLANT
  3. PROGRAF [Suspect]
     Indication: RENAL TRANSPLANT

REACTIONS (2)
  - LEUKOPENIA [None]
  - UROSEPSIS [None]
